FAERS Safety Report 10748228 (Version 1)
Quarter: 2015Q1

REPORT INFORMATION
  Report Type: Spontaneous
  Country: FR (occurrence: None)
  Receive Date: 20150127
  Receipt Date: 20150127
  Transmission Date: 20150721
  Serious: Yes (Other)
  Sender: FDA-Public Use
  Company Number: FK201500353

PATIENT
  Age: 41 Year

DRUGS (6)
  1. FLUOROURACIL. [Suspect]
     Active Substance: FLUOROURACIL
     Indication: COLORECTAL CANCER METASTATIC
     Dosage: 12 CYCLES, INTRAVEOUS (NOT OTHERWISE SPECIFIED)
     Route: 042
  2. OXALIPLATIN (MANUFACTURER UNKNOWN) (OXALIPLATIN) (OXALIPLATIN) [Suspect]
     Active Substance: OXALIPLATIN
     Indication: METASTASES TO LIVER
     Dosage: 12 CYCLES, INTRAVENOUS (NOT OTHERWISE SPECIFIED)?
     Route: 042
  3. LEUCOVORIN CALCIUM (MANUFACTURER UNKNOWN) (LEUCOVORIN CALCIUM) (LEUCOVORIN CALCIUM) [Concomitant]
     Active Substance: LEUCOVORIN CALCIUM
     Indication: METASTASES TO LIVER
     Dosage: 12 CYCLES, INTRAVENOUS (NOT OTHERWISE SPECIFIED)
     Route: 042
  4. OXALIPLATIN (MANUFACTURER UNKNOWN) (OXALIPLATIN) (OXALIPLATIN) [Suspect]
     Active Substance: OXALIPLATIN
     Indication: COLORECTAL CANCER METASTATIC
     Dosage: 12 CYCLES, INTRAVENOUS (NOT OTHERWISE SPECIFIED)?
     Route: 042
  5. LEUCOVORIN CALCIUM (MANUFACTURER UNKNOWN) (LEUCOVORIN CALCIUM) (LEUCOVORIN CALCIUM) [Concomitant]
     Active Substance: LEUCOVORIN CALCIUM
     Indication: COLORECTAL CANCER METASTATIC
     Dosage: 12 CYCLES, INTRAVENOUS (NOT OTHERWISE SPECIFIED)
     Route: 042
  6. FLUOROURACIL. [Suspect]
     Active Substance: FLUOROURACIL
     Indication: METASTASES TO LIVER
     Dosage: 12 CYCLES, INTRAVEOUS (NOT OTHERWISE SPECIFIED)
     Route: 042

REACTIONS (2)
  - Portal hypertension [None]
  - Nodular regenerative hyperplasia [None]
